FAERS Safety Report 24760433 (Version 1)
Quarter: 2024Q4

REPORT INFORMATION
  Report Type: Spontaneous
  Country: US (occurrence: US)
  Receive Date: 20241220
  Receipt Date: 20241220
  Transmission Date: 20250115
  Serious: Yes (Hospitalization)
  Sender: PADAGIS
  Company Number: US-PADAGIS-2024PAD01936

PATIENT

DRUGS (8)
  1. CYCLOSPORINE [Suspect]
     Active Substance: CYCLOSPORINE
     Indication: Leukaemia
     Dosage: 200 MG, BID
     Route: 065
  2. HUMAN IMMUNOGLOBULIN G [Concomitant]
     Active Substance: HUMAN IMMUNOGLOBULIN G
     Indication: Leukaemia
     Dosage: 2 G/KG
     Route: 065
  3. RITUXIMAB [Concomitant]
     Active Substance: RITUXIMAB
     Indication: Leukaemia
     Dosage: 375 MG/M2, WEEKLY
     Route: 042
  4. METHYLPREDNISOLONE [Concomitant]
     Active Substance: METHYLPREDNISOLONE
     Indication: Leukaemia
     Dosage: HIGH DOSE METHYLPREDNISOLONE
     Route: 065
  5. METHYLPREDNISOLONE [Concomitant]
     Active Substance: METHYLPREDNISOLONE
     Dosage: HIGH DOSE METHYLPREDNISOLONE TAPERED TO WEEKLY
     Route: 065
  6. CLADRIBINE [Concomitant]
     Active Substance: CLADRIBINE
     Indication: Leukaemia
     Dosage: 5 MG/M2
     Route: 065
  7. CYTARABINE [Concomitant]
     Active Substance: CYTARABINE
     Indication: Leukaemia
     Dosage: 200 MG, BID
     Route: 058
  8. GILTERITINIB [Concomitant]
     Active Substance: GILTERITINIB
     Indication: Leukaemia
     Dosage: 80 MG, QD
     Route: 065

REACTIONS (2)
  - Hepatic enzyme increased [Unknown]
  - Product use in unapproved indication [Unknown]
